FAERS Safety Report 7485029-1 (Version None)
Quarter: 2011Q2

REPORT INFORMATION
  Report Type: 
  Country: None (occurrence: None)
  Receive Date: 20110517
  Receipt Date: 20100423
  Transmission Date: 20111010
  Serious: No
  Sender: FDA-Public Use
  Company Number: US-NOVEN-ALL1-2010-02419

PATIENT

DRUGS (2)
  1. DAYTRANA [Suspect]
     Dosage: 15 MG, 1X/DAY:QD
     Route: 062
     Dates: start: 20100415
  2. STRATTERA [Concomitant]
     Dosage: 60 MG, 1X/DAY:QD
     Route: 048
     Dates: start: 20100101

REACTIONS (3)
  - OFF LABEL USE [None]
  - SOMNOLENCE [None]
  - INITIAL INSOMNIA [None]
